FAERS Safety Report 12301311 (Version 1)
Quarter: 2016Q2

REPORT INFORMATION
  Report Type: Spontaneous
  Country: ES (occurrence: ES)
  Receive Date: 20160425
  Receipt Date: 20160425
  Transmission Date: 20160815
  Serious: Yes (Hospitalization)
  Sender: FDA-Public Use
  Company Number: ES-ABBVIE-16P-144-1613158-00

PATIENT
  Age: 42 Year
  Sex: Male

DRUGS (6)
  1. DEPAKINE (VALPROATE SODIUM) [Suspect]
     Active Substance: VALPROATE SODIUM
     Indication: SUICIDE ATTEMPT
     Route: 048
     Dates: start: 20141229, end: 20150116
  2. DEPAKINE (VALPROATE SODIUM) [Suspect]
     Active Substance: VALPROATE SODIUM
     Indication: NEURALGIA
     Route: 048
     Dates: start: 20150116, end: 20150116
  3. LAMOTRIGINE. [Concomitant]
     Active Substance: LAMOTRIGINE
     Indication: PRODUCT USED FOR UNKNOWN INDICATION
     Route: 065
     Dates: start: 20141229, end: 20150116
  4. GABAPENTIN. [Suspect]
     Active Substance: GABAPENTIN
     Indication: PRODUCT USED FOR UNKNOWN INDICATION
     Route: 048
     Dates: start: 20141229, end: 20150116
  5. GABAPENTIN. [Suspect]
     Active Substance: GABAPENTIN
     Route: 048
     Dates: start: 20150116, end: 20150116
  6. SEROQUEL [Concomitant]
     Active Substance: QUETIAPINE FUMARATE
     Indication: PRODUCT USED FOR UNKNOWN INDICATION
     Route: 065
     Dates: start: 2010

REACTIONS (1)
  - Hepatitis acute [Recovered/Resolved]

NARRATIVE: CASE EVENT DATE: 20150120
